FAERS Safety Report 25438473 (Version 1)
Quarter: 2025Q2

REPORT INFORMATION
  Report Type: Report from Study
  Country: CA (occurrence: CA)
  Receive Date: 20250616
  Receipt Date: 20250616
  Transmission Date: 20250717
  Serious: Yes (Other)
  Sender: ASTELLAS
  Company Number: CA-SEATTLE GENETICS-2022SGN02132

PATIENT
  Age: 66 Year
  Sex: Male
  Weight: 62 kg

DRUGS (12)
  1. ENFORTUMAB VEDOTIN-EJFV [Suspect]
     Active Substance: ENFORTUMAB VEDOTIN-EJFV
     Indication: Transitional cell carcinoma
     Route: 065
  2. ENFORTUMAB VEDOTIN-EJFV [Suspect]
     Active Substance: ENFORTUMAB VEDOTIN-EJFV
     Route: 065
  3. ENFORTUMAB VEDOTIN-EJFV [Suspect]
     Active Substance: ENFORTUMAB VEDOTIN-EJFV
     Route: 065
  4. ENFORTUMAB VEDOTIN-EJFV [Suspect]
     Active Substance: ENFORTUMAB VEDOTIN-EJFV
     Route: 065
  5. ENFORTUMAB VEDOTIN-EJFV [Suspect]
     Active Substance: ENFORTUMAB VEDOTIN-EJFV
     Route: 065
  6. ENFORTUMAB VEDOTIN-EJFV [Suspect]
     Active Substance: ENFORTUMAB VEDOTIN-EJFV
     Route: 065
  7. ENFORTUMAB VEDOTIN-EJFV [Suspect]
     Active Substance: ENFORTUMAB VEDOTIN-EJFV
     Route: 065
  8. ENFORTUMAB VEDOTIN-EJFV [Suspect]
     Active Substance: ENFORTUMAB VEDOTIN-EJFV
     Route: 065
  9. ENFORTUMAB VEDOTIN-EJFV [Suspect]
     Active Substance: ENFORTUMAB VEDOTIN-EJFV
     Route: 065
  10. ENFORTUMAB VEDOTIN-EJFV [Suspect]
     Active Substance: ENFORTUMAB VEDOTIN-EJFV
     Route: 065
  11. HYDROMORPHONE [Suspect]
     Active Substance: HYDROMORPHONE
     Indication: Pain
     Dosage: 3 MG, ONCE DAILY (QAM)
     Route: 065
  12. METOCLOPRAMIDE [Concomitant]
     Active Substance: METOCLOPRAMIDE
     Indication: Transitional cell carcinoma
     Dosage: 5 MG, ONCE DAILY/ (Q4HR)
     Route: 065

REACTIONS (44)
  - Skin haemorrhage [Not Recovered/Not Resolved]
  - Neuropathy peripheral [Not Recovered/Not Resolved]
  - Alopecia [Unknown]
  - Diarrhoea [Recovered/Resolved]
  - Nausea [Unknown]
  - Vomiting [Unknown]
  - Diarrhoea [Unknown]
  - Pain [Not Recovered/Not Resolved]
  - Malaise [Recovering/Resolving]
  - Dizziness [Unknown]
  - Sleep disorder [Recovering/Resolving]
  - Anxiety [Unknown]
  - Increased appetite [Recovered/Resolved]
  - Somnolence [Unknown]
  - Withdrawal syndrome [Unknown]
  - Stress [Unknown]
  - Head injury [Unknown]
  - Skin laceration [Unknown]
  - Agitation [Unknown]
  - Weight increased [Unknown]
  - Productive cough [Unknown]
  - Joint swelling [Unknown]
  - Peripheral swelling [Unknown]
  - Poor venous access [Unknown]
  - Sleep disorder [Unknown]
  - Dry mouth [Unknown]
  - Appetite disorder [Unknown]
  - Insomnia [Unknown]
  - Abdominal pain [Unknown]
  - Weight decreased [Recovering/Resolving]
  - Arthralgia [Recovering/Resolving]
  - Haemoglobin decreased [Unknown]
  - Cystitis [Unknown]
  - Dry skin [Unknown]
  - Arthritis [Unknown]
  - Pruritus [Unknown]
  - Fatigue [Recovering/Resolving]
  - Decreased appetite [Recovered/Resolved]
  - Diarrhoea [Recovered/Resolved]
  - Nausea [Unknown]
  - Vomiting [Unknown]
  - Rash [Unknown]
  - General physical condition abnormal [Not Recovered/Not Resolved]
  - Weight abnormal [Not Recovered/Not Resolved]

NARRATIVE: CASE EVENT DATE: 20220301
